FAERS Safety Report 5512847-9 (Version None)
Quarter: 2007Q4

REPORT INFORMATION
  Report Type: 
  Country: None (occurrence: None)
  Receive Date: 20071112
  Receipt Date: 20071101
  Transmission Date: 20080405
  Serious: Yes (Other)
  Sender: FDA-Public Use
  Company Number: US-WYE-H00978807

PATIENT
  Sex: Female
  Weight: 61.29 kg

DRUGS (14)
  1. EFFEXOR XR [Suspect]
     Indication: COMPLEX REGIONAL PAIN SYNDROME
     Route: 048
     Dates: start: 20030101
  2. EFFEXOR XR [Suspect]
     Indication: PAIN
  3. PAXIL [Suspect]
     Indication: DEPRESSION
     Route: 048
     Dates: start: 20050101
  4. WELLBUTRIN [Suspect]
     Indication: DEPRESSION
     Route: 048
     Dates: start: 20050101
  5. DILAUDID [Concomitant]
     Dosage: UNKNOWN
     Dates: start: 20030101
  6. ADDERALL 10 [Concomitant]
     Dosage: UNKNOWN
  7. DEPAKOTE [Concomitant]
     Dosage: UNKNOWN
     Dates: start: 20070401
  8. XANAX [Concomitant]
     Dosage: UNKNOWN
     Dates: start: 20030101
  9. AMBIEN [Concomitant]
     Dosage: UNKNOWN
     Dates: start: 20060101
  10. FLEXERIL [Concomitant]
     Dosage: UNKNOWN
     Dates: start: 20030101
  11. PROMETHAZINE [Concomitant]
     Dosage: UNKNOWN
     Dates: start: 20030101
  12. ACTIQ [Suspect]
     Indication: COMPLEX REGIONAL PAIN SYNDROME
     Dosage: 1600 UG 5-6 TIMES DAILY
     Route: 002
     Dates: start: 20051001, end: 20070901
  13. ACTIQ [Suspect]
     Indication: PAIN
     Dosage: 400 UG UNKNOWN FREQUENCY
     Route: 002
     Dates: start: 20070801, end: 20070801
  14. FENTANYL CITRATE [Suspect]
     Dosage: UNKNOWN

REACTIONS (2)
  - DENTAL CARIES [None]
  - DRY MOUTH [None]
